FAERS Safety Report 16464478 (Version 4)
Quarter: 2019Q3

REPORT INFORMATION
  Report Type: Spontaneous
  Country: AT (occurrence: AT)
  Receive Date: 20190621
  Receipt Date: 20190909
  Transmission Date: 20191004
  Serious: Yes (Hospitalization)
  Sender: FDA-Public Use
  Company Number: AT-CELGENEUS-AUT-20190604929

PATIENT
  Age: 78 Year
  Sex: Female
  Weight: 59 kg

DRUGS (35)
  1. EUTHYROX [Concomitant]
     Active Substance: LEVOTHYROXINE SODIUM
     Indication: HYPOTHYROIDISM
     Dosage: 25 MILLIGRAM
     Route: 048
  2. HYDAL [Concomitant]
     Active Substance: HYDROMORPHONE HYDROCHLORIDE
     Indication: FRACTURED SACRUM
     Route: 048
     Dates: start: 20150903
  3. ERYTHROPOETIN [Concomitant]
     Active Substance: ERYTHROPOIETIN
     Indication: ANAEMIA
     Route: 058
     Dates: start: 20150916
  4. PSYCHOPAX [Concomitant]
     Active Substance: DIAZEPAM
     Indication: DEPRESSION
     Route: 048
     Dates: start: 20190411
  5. OLEOVIT D3 [Concomitant]
     Active Substance: CHOLECALCIFEROL
     Indication: VITAMIN D DEFICIENCY
     Dosage: 5.7143 DOSAGE FORMS
     Route: 048
     Dates: start: 20150814
  6. TEVETENS [Concomitant]
     Indication: HYPERTENSION
     Dosage: 600 MILLIGRAM
     Route: 048
     Dates: start: 20150814
  7. BIOFLORINA [Concomitant]
     Indication: DIARRHOEA
     Route: 048
     Dates: start: 20160127
  8. REVLIMID [Suspect]
     Active Substance: LENALIDOMIDE
     Indication: PLASMA CELL MYELOMA
     Dosage: 10 MILLIGRAM
     Route: 048
     Dates: start: 20150826
  9. NOVALGIN [Concomitant]
     Route: 048
     Dates: start: 20180608
  10. PSYCHOPAX [Concomitant]
     Active Substance: DIAZEPAM
     Indication: SLEEP DISORDER
     Route: 048
     Dates: start: 20170121
  11. TRITTICO [Concomitant]
     Active Substance: TRAZODONE HYDROCHLORIDE
     Indication: SLEEP DISORDER
     Dosage: 150 MILLIGRAM
     Route: 048
     Dates: start: 20180412
  12. SAROTEN [Concomitant]
     Active Substance: AMITRIPTYLINE
     Indication: DEPRESSION
     Dosage: 30 MILLIGRAM
     Route: 048
     Dates: start: 20180706
  13. DEXPANTHENOL. [Concomitant]
     Active Substance: DEXPANTHENOL
     Indication: INFECTION PROPHYLAXIS
     Dosage: 3 DOSAGE FORMS
     Route: 061
     Dates: start: 20180221
  14. ACC [Concomitant]
     Active Substance: ACETYLCYSTEINE
     Indication: RESPIRATORY TRACT INFECTION
     Route: 048
     Dates: start: 20180221
  15. MIRTAZAPIN [Concomitant]
     Active Substance: MIRTAZAPINE
     Indication: SLEEP DISORDER
     Dosage: 60 MILLIGRAM
     Route: 048
     Dates: start: 20190411
  16. PANTOPRAZOLE [Concomitant]
     Active Substance: PANTOPRAZOLE
     Indication: GASTROINTESTINAL DISORDER THERAPY
     Dosage: 40 MILLIGRAM
     Route: 048
     Dates: start: 20151104
  17. VALACICLOVIR [Concomitant]
     Active Substance: VALACYCLOVIR HYDROCHLORIDE
     Indication: HERPES ZOSTER
     Dosage: 500 MILLIGRAM
     Route: 048
     Dates: start: 20151105
  18. ZOMETA [Concomitant]
     Active Substance: ZOLEDRONIC ACID
     Indication: OSTEOPOROSIS PROPHYLAXIS
     Dosage: .1333 MILLIGRAM
     Route: 041
     Dates: start: 20150812
  19. NOVALGIN [Concomitant]
     Indication: FRACTURED SACRUM
     Route: 048
     Dates: start: 20160406
  20. PARACODINE [Concomitant]
     Active Substance: DIHYDROCODEINE BITARTRATE
     Route: 048
     Dates: start: 20190228
  21. DOXYCYCLINE. [Concomitant]
     Active Substance: DOXYCYCLINE
     Indication: PNEUMONIA
     Route: 065
  22. ZOLDEM [Concomitant]
     Active Substance: ZOLPIDEM TARTRATE
     Indication: INITIAL INSOMNIA
     Route: 048
     Dates: start: 20151022
  23. MUCOBENE [Concomitant]
     Indication: PNEUMONIA
     Route: 048
     Dates: start: 20180206
  24. HYDROMORPHONE [Concomitant]
     Active Substance: HYDROMORPHONE
     Indication: PAIN
     Dosage: 32 MILLIGRAM
     Route: 048
     Dates: start: 20181122
  25. SICCASAN [Concomitant]
     Indication: LACRIMATION INCREASED
     Route: 047
  26. MUCOBENE [Concomitant]
     Indication: COUGH
  27. NOVALGIN [Concomitant]
     Indication: PAIN
     Route: 048
     Dates: start: 20160601
  28. PROTHIPENDYL [Concomitant]
     Active Substance: PROTHIPENDYL
     Indication: AGITATION
     Route: 048
     Dates: start: 20160923
  29. PARACODINE [Concomitant]
     Active Substance: DIHYDROCODEINE BITARTRATE
     Indication: RESPIRATORY TRACT INFECTION
     Dosage: 60 DOSAGE FORMS
     Route: 048
     Dates: start: 20190221
  30. REVLIMID [Suspect]
     Active Substance: LENALIDOMIDE
     Dosage: 10 MILLIGRAM
     Route: 048
     Dates: start: 20181008, end: 20181018
  31. DEXAMETHASONE ORAL [Suspect]
     Active Substance: DEXAMETHASONE
     Indication: PLASMA CELL MYELOMA
     Route: 048
     Dates: start: 20150826, end: 20180215
  32. DARATUMUMAB [Concomitant]
     Active Substance: DARATUMUMAB
     Indication: PLASMA CELL MYELOMA
     Dosage: 960 MILLIGRAM
     Route: 041
     Dates: start: 20150826, end: 20190509
  33. AMPHO-MORONAL [Concomitant]
     Active Substance: AMPHOTERICIN B
     Indication: ANTIBIOTIC THERAPY
     Dosage: 6 DOSAGE FORMS
     Route: 048
     Dates: start: 20150817
  34. AMLODIPINE [Concomitant]
     Active Substance: AMLODIPINE BESYLATE
     Indication: HYPERTENSION
     Dosage: 5 MILLIGRAM
     Route: 048
     Dates: start: 20150814
  35. HYDROMORPHONE [Concomitant]
     Active Substance: HYDROMORPHONE
     Route: 048
     Dates: start: 20181122

REACTIONS (2)
  - Alanine aminotransferase increased [Recovered/Resolved]
  - C-reactive protein increased [Recovered/Resolved]

NARRATIVE: CASE EVENT DATE: 20190606
